FAERS Safety Report 9500873 (Version 2)
Quarter: 2013Q3

REPORT INFORMATION
  Report Type: Spontaneous
  Country: US (occurrence: None)
  Receive Date: 20130107
  Receipt Date: 20130724
  Transmission Date: 20140515
  Serious: Yes (Other)
  Sender: FDA-Public Use
  Company Number: PHEH2012US017399

PATIENT
  Age: 52 Year
  Sex: Female
  Weight: 63.9 kg

DRUGS (1)
  1. GILENYA (FTY)CAPSULE, 0.5MG [Suspect]
     Indication: MULTIPLE SCLEROSIS
     Route: 048
     Dates: start: 20120709

REACTIONS (7)
  - Acne [None]
  - Rash [None]
  - Diarrhoea [None]
  - Lymphocyte count decreased [None]
  - Balance disorder [None]
  - Sinus disorder [None]
  - Affective disorder [None]
